FAERS Safety Report 4318995-3 (Version None)
Quarter: 2004Q1

REPORT INFORMATION
  Report Type: 
  Country: None (occurrence: None)
  Receive Date: 20040318
  Receipt Date: 20040303
  Transmission Date: 20041129
  Serious: Yes (Hospitalization)
  Sender: FDA-Public Use
  Company Number: SE-BRISTOL-MYERS SQUIBB COMPANY-12536009

PATIENT
  Age: 88 Year
  Sex: Female

DRUGS (14)
  1. METFORMIN HCL [Suspect]
     Indication: DIABETES MELLITUS
     Route: 048
     Dates: end: 20031001
  2. MIANSERIN [Suspect]
     Route: 048
     Dates: end: 20031001
  3. DIOVAN [Suspect]
     Indication: ESSENTIAL HYPERTENSION
     Route: 048
     Dates: end: 20031022
  4. LEXINOR [Suspect]
     Indication: URINARY TRACT INFECTION
     Route: 048
     Dates: end: 20031022
  5. ZOPIKLON [Concomitant]
  6. METOPROLOL [Concomitant]
  7. PILOCARPINE [Concomitant]
  8. BEHEPAN [Concomitant]
  9. TERBUTALINE SULFATE [Concomitant]
  10. PREDNISOLONE [Concomitant]
  11. LEVOTHYROXIN [Concomitant]
  12. POTASSIUM [Concomitant]
  13. FELODIPINE [Concomitant]
  14. OXAZEPAM [Concomitant]

REACTIONS (4)
  - NEOPLASM MALIGNANT [None]
  - NEUTROPENIA [None]
  - PYREXIA [None]
  - SYNCOPE [None]
